FAERS Safety Report 8582416-5 (Version None)
Quarter: 2012Q3

REPORT INFORMATION
  Report Type: 
  Country: None (occurrence: None)
  Receive Date: 20120809
  Receipt Date: 20120802
  Transmission Date: 20120928
  Serious: Yes (Other)
  Sender: FDA-Public Use
  Company Number: JP-GLAXOSMITHKLINE-B0813269A

PATIENT
  Sex: Male

DRUGS (6)
  1. LAMICTAL [Suspect]
     Indication: BIPOLAR DISORDER
     Dosage: 25MG TWICE PER DAY
     Route: 048
     Dates: start: 20120511, end: 20120530
  2. LAMICTAL [Suspect]
     Dosage: 50MG PER DAY
     Route: 048
     Dates: start: 20120612, end: 20120618
  3. VALPROATE SODIUM [Concomitant]
     Dosage: 600MG PER DAY
     Route: 048
  4. SEROQUEL [Concomitant]
     Dosage: 400MG PER DAY
     Route: 048
  5. TRIAZOLAM [Concomitant]
     Dosage: .5MG PER DAY
     Route: 048
  6. LAMICTAL [Suspect]
     Dosage: 25MG PER DAY
     Route: 048
     Dates: start: 20120531, end: 20120611

REACTIONS (3)
  - ORAL MUCOSA EROSION [None]
  - RASH [None]
  - DRUG ERUPTION [None]
